FAERS Safety Report 8841424 (Version 1)
Quarter: 2012Q4

REPORT INFORMATION
  Report Type: 
  Country: JP (occurrence: JP)
  Receive Date: 20121015
  Receipt Date: 20121015
  Transmission Date: 20130627
  Serious: Yes (Life-Threatening, Hospitalization, Other)
  Sender: FDA-Public Use
  Company Number: JP-BAYER-2012-069714

PATIENT
  Age: 66 Year
  Sex: Male
  Weight: 73 kg

DRUGS (13)
  1. NEXAVAR [Suspect]
     Indication: HEPATIC NEOPLASM MALIGNANT
     Dosage: Daily dose 200 mg
     Route: 048
     Dates: start: 20120502, end: 20120515
  2. NEXAVAR [Suspect]
     Indication: HEPATIC NEOPLASM MALIGNANT
     Dosage: 400 mg
     Route: 048
     Dates: start: 20120516, end: 20120711
  3. APIDRA [Concomitant]
     Indication: DIABETES MELLITUS
     Dosage: Daily dose 22 u
     Route: 058
  4. CILOSTAZOL [Concomitant]
     Indication: CEREBRAL INFARCTION
     Dosage: Daily dose 200 mg
     Route: 048
  5. MICARDIS [Concomitant]
     Indication: HYPERTENSION
     Dosage: Daily dose 40 mg
     Route: 048
  6. AMLODIPIN [Concomitant]
     Indication: HYPERTENSION
     Dosage: Daily dose 5 mg
     Route: 048
  7. CARDENALIN [Concomitant]
     Indication: HYPERTENSION
     Dosage: Daily dose 1 mg
     Route: 048
  8. LIVACT [Concomitant]
     Indication: HYPOALBUMINAEMIA
     Dosage: Daily dose 12.45 g
     Route: 048
     Dates: start: 2009
  9. UREA [Concomitant]
     Indication: PROPHYLAXIS
     Dosage: UNK
     Route: 061
     Dates: start: 20120502, end: 20120717
  10. UREA [Concomitant]
     Indication: PROPHYLAXIS
     Dosage: UNK
     Route: 061
     Dates: start: 201205, end: 20120717
  11. MIYA-BM [Concomitant]
     Indication: DISBACTERIOSIS
     Dosage: Daily dose 3 g
     Route: 048
  12. MIRIPLATIN [Concomitant]
     Dosage: Daily dose 70 mg
     Route: 013
     Dates: start: 20120323, end: 20120323
  13. HUMULIN R [Concomitant]
     Indication: DIABETES MELLITUS
     Dosage: Daily dose 5 u
     Dates: start: 2007

REACTIONS (14)
  - Hepatitis acute [Recovered/Resolved]
  - Dermatitis exfoliative [Recovered/Resolved]
  - Skin exfoliation [Recovered/Resolved]
  - Jaundice [Recovered/Resolved]
  - Blood bilirubin increased [Recovered/Resolved]
  - Blood alkaline phosphatase increased [Recovered/Resolved]
  - Aspartate aminotransferase increased [Recovered/Resolved]
  - Alanine aminotransferase increased [Recovered/Resolved]
  - Gamma-glutamyltransferase increased [Recovering/Resolving]
  - Platelet count decreased [Not Recovered/Not Resolved]
  - Face oedema [Recovered/Resolved]
  - Palmar-plantar erythrodysaesthesia syndrome [Recovered/Resolved]
  - Ascites [Recovered/Resolved]
  - Pleural effusion [Recovered/Resolved]
